FAERS Safety Report 8252401-1 (Version None)
Quarter: 2012Q2

REPORT INFORMATION
  Report Type: 
  Country: None (occurrence: None)
  Receive Date: 20120402
  Receipt Date: 20110627
  Transmission Date: 20120825
  Serious: No
  Sender: FDA-Public Use
  Company Number: US-ABBOTT-11P-163-0834650-00

PATIENT
  Sex: Male

DRUGS (1)
  1. ANDROGEL [Suspect]
     Indication: BLOOD TESTOSTERONE DECREASED
     Dosage: 4 PUMPS/DAY
     Dates: start: 20110601

REACTIONS (3)
  - PHOTOSENSITIVITY REACTION [None]
  - ERYTHEMA [None]
  - PRODUCT COUNTERFEIT [None]
